FAERS Safety Report 25315356 (Version 3)
Quarter: 2025Q2

REPORT INFORMATION
  Report Type: Report from Study
  Country: US (occurrence: US)
  Receive Date: 20250514
  Receipt Date: 20250609
  Transmission Date: 20250716
  Serious: Yes (Other)
  Sender: MALLINCKRODT
  Company Number: US-MALLINCKRODT-MNK202502317

PATIENT
  Age: 44 Year
  Sex: Male

DRUGS (1)
  1. CORTICOTROPIN [Suspect]
     Active Substance: CORTICOTROPIN
     Indication: Arthralgia

REACTIONS (7)
  - Condition aggravated [Recovering/Resolving]
  - Arthralgia [Unknown]
  - Arthropathy [Not Recovered/Not Resolved]
  - Mass [Unknown]
  - Inflammation [Not Recovered/Not Resolved]
  - Injection site bruising [Unknown]
  - Product use in unapproved indication [Unknown]

NARRATIVE: CASE EVENT DATE: 20250101
